FAERS Safety Report 6020087-2 (Version None)
Quarter: 2008Q4

REPORT INFORMATION
  Report Type: 
  Country: None (occurrence: None)
  Receive Date: 20081226
  Receipt Date: 20081216
  Transmission Date: 20090506
  Serious: Yes (Hospitalization)
  Sender: FDA-Public Use
  Company Number: US-BAYER-US-2007-032847

PATIENT
  Age: 52 Year
  Sex: Male

DRUGS (3)
  1. TU JENAPHARM (SH L00123B) [Suspect]
     Indication: HYPOGONADISM
     Dosage: UNIT DOSE: 750 MG
     Route: 030
     Dates: start: 20040507, end: 20070813
  2. CLARINEX /USA/ [Concomitant]
     Indication: DRUG USE FOR UNKNOWN INDICATION
     Dosage: UNIT DOSE: 2.5 MG
     Dates: start: 20040101
  3. PERCOCET [Concomitant]
     Indication: DRUG USE FOR UNKNOWN INDICATION
     Dosage: UNIT DOSE: 7.5 MG
     Dates: start: 20070401, end: 20070601

REACTIONS (1)
  - DEEP VEIN THROMBOSIS [None]
